FAERS Safety Report 8088827-9 (Version None)
Quarter: 2012Q1

REPORT INFORMATION
  Report Type: 
  Country: None (occurrence: None)
  Receive Date: 20120128
  Receipt Date: 20110406
  Transmission Date: 20120608
  Serious: No
  Sender: FDA-Public Use
  Company Number: US-ABBOTT-11P-163-0717010-00

PATIENT
  Sex: Male
  Weight: 112.59 kg

DRUGS (16)
  1. HUMIRA [Suspect]
     Indication: RHEUMATOID ARTHRITIS
     Route: 058
     Dates: start: 20080101, end: 20101101
  2. FELODIPINE [Concomitant]
     Indication: BLOOD PRESSURE INCREASED
     Route: 048
  3. ALLOPURINOL [Concomitant]
     Indication: PROPHYLAXIS
     Route: 048
  4. PROTONIX [Concomitant]
     Indication: GASTROOESOPHAGEAL REFLUX DISEASE
     Route: 048
  5. LOPRESSOR [Concomitant]
     Indication: BLOOD PRESSURE INCREASED
     Route: 048
  6. TRICOR [Concomitant]
     Indication: BLOOD CHOLESTEROL INCREASED
     Route: 048
  7. ALLOPURINOL [Concomitant]
     Indication: GOUT
  8. METHOTREXATE [Concomitant]
     Indication: RHEUMATOID ARTHRITIS
     Route: 048
  9. DIOVAN [Concomitant]
     Indication: BLOOD PRESSURE INCREASED
     Route: 048
  10. INDAPAMIDE [Concomitant]
     Indication: BLOOD PRESSURE INCREASED
     Route: 048
  11. COLCHICINE [Concomitant]
     Indication: GOUT
     Route: 048
  12. VICTOZA [Concomitant]
     Indication: DIABETES MELLITUS
     Route: 048
  13. WELCHOL [Concomitant]
     Indication: BLOOD CHOLESTEROL INCREASED
     Route: 048
  14. FOLIC ACID [Concomitant]
     Indication: VITAMIN SUPPLEMENTATION
     Route: 048
  15. MELOXICAM [Concomitant]
     Indication: ARTHRALGIA
     Route: 048
  16. LEVAMIR [Concomitant]
     Indication: DIABETES MELLITUS
     Route: 058

REACTIONS (1)
  - INJECTION SITE PRURITUS [None]
